FAERS Safety Report 23709360 (Version 1)
Quarter: 2024Q2

REPORT INFORMATION
  Report Type: Spontaneous
  Country: CA (occurrence: CA)
  Receive Date: 20240404
  Receipt Date: 20240404
  Transmission Date: 20240716
  Serious: Yes (Hospitalization, Other)
  Sender: FDA-Public Use
  Company Number: CA-TEVA-VS-3178835

PATIENT
  Age: 6 Year
  Sex: Male

DRUGS (3)
  1. AMOXICILLIN [Suspect]
     Active Substance: AMOXICILLIN
     Indication: Tooth infection
     Dosage: TIME INTERVAL: 0.33333333 DAYS
     Route: 048
  2. ADVIL [Concomitant]
     Active Substance: IBUPROFEN
     Indication: Product used for unknown indication
     Dosage: DOSE FORM: NOT SPECIFIED
     Route: 065
  3. BENADRYL [Concomitant]
     Active Substance: DIPHENHYDRAMINE HYDROCHLORIDE
     Indication: Product used for unknown indication
     Route: 065

REACTIONS (6)
  - Attention deficit hyperactivity disorder [Recovering/Resolving]
  - Dysarthria [Recovering/Resolving]
  - Eye movement disorder [Recovering/Resolving]
  - Learning disorder [Recovering/Resolving]
  - Psychomotor hyperactivity [Recovering/Resolving]
  - Tic [Recovering/Resolving]
